FAERS Safety Report 21266811 (Version 1)
Quarter: 2022Q3

REPORT INFORMATION
  Report Type: Spontaneous
  Country: CA (occurrence: CA)
  Receive Date: 20220829
  Receipt Date: 20220829
  Transmission Date: 20221026
  Serious: Yes (Other)
  Sender: FDA-Public Use
  Company Number: None

PATIENT
  Age: 62 Year
  Sex: Female

DRUGS (7)
  1. PACLITAXEL [Suspect]
     Active Substance: PACLITAXEL
     Indication: Vulvar adenocarcinoma
     Dosage: LIQUID INTRAVENOUS, 1 EVERY 1 WEEKS, DOSE-175 MG/KG
     Route: 042
  2. ZOLEDRONIC ACID [Suspect]
     Active Substance: ZOLEDRONIC ACID
     Indication: Vulval disorder
     Route: 042
  3. PERTUZUMAB [Suspect]
     Active Substance: PERTUZUMAB
     Indication: Vulval disorder
     Dosage: 1 EVERY 3 WEEKS
     Route: 042
  4. TRASTUZUMAB [Suspect]
     Active Substance: TRASTUZUMAB
     Indication: Vulval disorder
     Dosage: 1 EVERY 3 WEEKS
     Route: 042
  5. PERTUZUMAB [Concomitant]
     Active Substance: PERTUZUMAB
     Indication: Vulvar adenocarcinoma
     Dosage: 1 EVERY 3 WEEKS
     Route: 042
  6. TRASTUZUMAB [Concomitant]
     Active Substance: TRASTUZUMAB
     Indication: Vulvar adenocarcinoma
     Dosage: 1 EVERY 3 WEEKS
     Route: 042
  7. ZOLEDRONIC ACID [Concomitant]
     Active Substance: ZOLEDRONIC ACID
     Indication: Vulvar adenocarcinoma
     Dosage: 1 EVERY 3 MONTHS
     Route: 042

REACTIONS (2)
  - Neuropathy peripheral [Unknown]
  - Off label use [Unknown]
